FAERS Safety Report 8799884 (Version 1)
Quarter: 2012Q4

REPORT INFORMATION
  Report Type: 
  Country: US (occurrence: US)
  Receive Date: 20120919
  Receipt Date: 20120919
  Transmission Date: 20130627
  Serious: Yes (Hospitalization)
  Sender: FDA-Public Use
  Company Number: US-009507513-1209USA003371

PATIENT

DRUGS (1)
  1. PROSCAR [Suspect]

REACTIONS (1)
  - Fluid retention [Unknown]
